FAERS Safety Report 25670159 (Version 1)
Quarter: 2025Q3

REPORT INFORMATION
  Report Type: Spontaneous
  Country: EU (occurrence: EU)
  Receive Date: 20250812
  Receipt Date: 20250812
  Transmission Date: 20251021
  Serious: Yes (Hospitalization)
  Sender: ACCORD
  Company Number: EU-Accord-499337

PATIENT
  Age: 85 Year
  Sex: Male

DRUGS (4)
  1. HYDROCHLOROTHIAZIDE\OLMESARTAN MEDOXOMIL [Suspect]
     Active Substance: HYDROCHLOROTHIAZIDE\OLMESARTAN MEDOXOMIL
     Indication: Hypertension
  2. LANSOPRAZOLE [Concomitant]
     Active Substance: LANSOPRAZOLE
  3. SUCRALFATE [Concomitant]
     Active Substance: SUCRALFATE
  4. ESOMEPRAZOLE [Concomitant]
     Active Substance: ESOMEPRAZOLE

REACTIONS (1)
  - Gastrointestinal disorder [Recovered/Resolved]
